FAERS Safety Report 4377079-9 (Version None)
Quarter: 2004Q2

REPORT INFORMATION
  Report Type: 
  Country: None (occurrence: None)
  Receive Date: 20040614
  Receipt Date: 20040602
  Transmission Date: 20050107
  Serious: Yes (Hospitalization)
  Sender: FDA-Public Use
  Company Number: PL-MERCK-0406POL00003

PATIENT
  Sex: Female

DRUGS (9)
  1. ALBUTEROL [Concomitant]
     Route: 065
  2. CEFUROXIME AXETIL [Concomitant]
     Indication: INFLAMMATION
     Route: 065
  3. CROMOLYN SODIUM [Concomitant]
     Route: 065
  4. DOXYCYCLINE [Concomitant]
     Indication: INFLAMMATION
     Route: 065
  5. FENOTEROL HYDROBROMIDE AND IPRATROPIUM BROMIDE [Concomitant]
     Indication: ASTHMA
     Route: 065
  6. FLUTICASONE PROPIONATE [Concomitant]
     Indication: ASTHMA
     Route: 065
  7. LORATADINE [Concomitant]
     Route: 065
  8. SINGULAIR [Suspect]
     Indication: ASTHMA
     Route: 048
     Dates: start: 20020401
  9. THEOPHYLLINE [Concomitant]
     Route: 065

REACTIONS (1)
  - ALLERGIC GRANULOMATOUS ANGIITIS [None]
